FAERS Safety Report 9088474 (Version 3)
Quarter: 2014Q2

REPORT INFORMATION
  Report Type: Report from Study
  Country: US (occurrence: US)
  Receive Date: 20130201
  Receipt Date: 20140603
  Transmission Date: 20141212
  Serious: Yes (Hospitalization)
  Sender: FDA-Public Use
  Company Number: US-JNJFOC-20130116202

PATIENT
  Age: 40 Year
  Sex: Female
  Weight: 52.16 kg

DRUGS (4)
  1. INFLIXIMAB, RECOMBINANT [Suspect]
     Indication: PSORIASIS
     Route: 042
     Dates: start: 20070918, end: 20071029
  2. HUMIRA [Concomitant]
     Indication: PSORIASIS
     Dates: start: 20121229
  3. HUMIRA [Concomitant]
     Indication: PSORIASIS
     Dates: start: 20080722
  4. CORTICOSTEROIDS [Concomitant]
     Route: 065

REACTIONS (1)
  - Breast cancer [Recovered/Resolved]
